FAERS Safety Report 25969126 (Version 2)
Quarter: 2025Q4

REPORT INFORMATION
  Report Type: Spontaneous
  Country: US (occurrence: US)
  Receive Date: 20251028
  Receipt Date: 20251201
  Transmission Date: 20260117
  Serious: No
  Sender: ROCHE
  Company Number: US-ROCHE-10000420907

PATIENT
  Age: 10 Year
  Sex: Male

DRUGS (3)
  1. HEMLIBRA [Suspect]
     Active Substance: EMICIZUMAB-KXWH
     Indication: Factor VIII deficiency
     Dosage: STRENGTH: 105 MG/0.7ML
     Route: 058
     Dates: start: 202202
  2. HEMLIBRA [Suspect]
     Active Substance: EMICIZUMAB-KXWH
     Indication: Factor VIII deficiency
     Dosage: STRENGTH: 105 MG/0.7ML
     Route: 058
     Dates: start: 202504
  3. ELOCTATE [Concomitant]
     Active Substance: EFMOROCTOCOG ALFA
     Dosage: 1 DOSE OF ELOCTATE WAS USED

REACTIONS (2)
  - Limb injury [Unknown]
  - Swelling [Unknown]

NARRATIVE: CASE EVENT DATE: 20251024
